FAERS Safety Report 7354006-3 (Version None)
Quarter: 2011Q1

REPORT INFORMATION
  Report Type: 
  Country: None (occurrence: None)
  Receive Date: 20110315
  Receipt Date: 20110304
  Transmission Date: 20110831
  Serious: Yes (Other)
  Sender: FDA-Public Use
  Company Number: PHHY2011US17688

PATIENT
  Sex: Female
  Weight: 71.655 kg

DRUGS (5)
  1. CARISOPRODOL [Concomitant]
     Indication: MUSCLE SPASMS
     Dosage: 350 MG, BID
     Route: 048
  2. BENAZEPRIL [Concomitant]
     Indication: PAIN
     Dosage: 20-25 MG, QD
     Route: 048
  3. HYDROCODONE BITARTRATE [Concomitant]
     Indication: PAIN
     Dosage: 5/ 325 MG, Q4H PRN
     Dates: start: 20110101
  4. CALCIUM [Concomitant]
     Indication: PAIN
     Dosage: UNK
     Route: 048
  5. FEMARA [Suspect]
     Indication: BREAST CANCER
     Dosage: 2.5 MG, QD
     Route: 048
     Dates: start: 20090301

REACTIONS (3)
  - DRUG INEFFECTIVE [None]
  - BREAST CANCER RECURRENT [None]
  - BREAST MASS [None]
